FAERS Safety Report 12762152 (Version 1)
Quarter: 2016Q3

REPORT INFORMATION
  Report Type: Spontaneous
  Country: US (occurrence: US)
  Receive Date: 20160915
  Receipt Date: 20160915
  Transmission Date: 20161109
  Serious: No
  Sender: FDA-Public Use
  Company Number: None

PATIENT
  Age: 60 Year
  Sex: Female

DRUGS (1)
  1. CAPECITABINE 500MG TABS TEVA PHARMACEUTICALS [Suspect]
     Active Substance: CAPECITABINE
     Indication: PRODUCT USED FOR UNKNOWN INDICATION
     Dosage: CAPECITABINE 500MG TABS - PO - BID FOR 14 DAYS, OFF 7 DAYS
     Route: 048
     Dates: start: 20160718

REACTIONS (1)
  - Drug effect decreased [None]
